FAERS Safety Report 6016333-1 (Version None)
Quarter: 2008Q4

REPORT INFORMATION
  Report Type: 
  Country: None (occurrence: None)
  Receive Date: 20081222
  Receipt Date: 20081218
  Transmission Date: 20090506
  Serious: Yes (Other)
  Sender: FDA-Public Use
  Company Number: DK-KINGPHARMUSA00001-K200801438

PATIENT
  Age: 64 Year
  Sex: Female

DRUGS (5)
  1. EPIPEN [Suspect]
     Dosage: UNK
  2. PREMARIN [Concomitant]
  3. LOMOTIL                            /00034001/ [Concomitant]
  4. SEROXAT                            /00830801/ [Concomitant]
  5. IBUPROFEN [Concomitant]

REACTIONS (4)
  - FLOPPY IRIS SYNDROME [None]
  - HYPERSENSITIVITY [None]
  - PALPITATIONS [None]
  - TREMOR [None]
